FAERS Safety Report 18863851 (Version 6)
Quarter: 2021Q2

REPORT INFORMATION
  Report Type: Report from Study
  Country: None (occurrence: JP)
  Receive Date: 20210209
  Receipt Date: 20210615
  Transmission Date: 20210717
  Serious: Yes (Hospitalization)
  Sender: FDA-Public Use
  Company Number: JP-ABBVIE-20K-087-3298884-00

PATIENT
  Age: 61 Year
  Sex: Male
  Weight: 42 kg

DRUGS (2)
  1. DUODOPA [Suspect]
     Active Substance: CARBIDOPA\LEVODOPA
     Indication: PARKINSON^S DISEASE
     Route: 050
     Dates: start: 20200204, end: 202002
  2. DUODOPA [Suspect]
     Active Substance: CARBIDOPA\LEVODOPA
     Route: 050
     Dates: start: 20200218

REACTIONS (15)
  - Dysphagia [Not Recovered/Not Resolved]
  - Epilepsy [Recovering/Resolving]
  - Pyrexia [Not Recovered/Not Resolved]
  - Device colour issue [Unknown]
  - Drug ineffective [Unknown]
  - Off label use [Not Recovered/Not Resolved]
  - Device occlusion [Unknown]
  - Pneumonia aspiration [Recovering/Resolving]
  - Amnesia [Unknown]
  - Therapeutic response shortened [Recovering/Resolving]
  - Device dislocation [Recovered/Resolved]
  - Seizure [Recovering/Resolving]
  - Intestinal dilatation [Recovered/Resolved]
  - Stoma site extravasation [Recovered/Resolved]
  - Device use issue [Unknown]

NARRATIVE: CASE EVENT DATE: 2020
